FAERS Safety Report 4392760-3 (Version None)
Quarter: 2004Q3

REPORT INFORMATION
  Report Type: 
  Country: None (occurrence: None)
  Receive Date: 20040702
  Receipt Date: 20040326
  Transmission Date: 20050211
  Serious: Yes (Other)
  Sender: FDA-Public Use
  Company Number: 2004UW05922

PATIENT
  Age: 71 Year
  Sex: Male
  Weight: 97.5234 kg

DRUGS (6)
  1. CRESTOR [Suspect]
     Indication: BLOOD CHOLESTEROL INCREASED
     Dosage: 10 MG
  2. AVAPRO [Concomitant]
  3. FOLIC ACID [Concomitant]
  4. HYDROCHLOROTHIAZIDE [Concomitant]
  5. NEXIUM [Concomitant]
  6. ZETIA [Concomitant]

REACTIONS (3)
  - ARRHYTHMIA [None]
  - ASTHENIA [None]
  - HEART RATE INCREASED [None]
